FAERS Safety Report 6057814-4 (Version None)
Quarter: 2009Q1

REPORT INFORMATION
  Report Type: 
  Country: None (occurrence: None)
  Receive Date: 20090129
  Receipt Date: 20090119
  Transmission Date: 20090719
  Serious: Yes (Other)
  Sender: FDA-Public Use
  Company Number: JP-ELI_LILLY_AND_COMPANY-JP200901004486

PATIENT
  Age: 25 Year
  Sex: Male

DRUGS (4)
  1. ZYPREXA [Suspect]
     Dosage: UNK, UNK
     Route: 048
  2. RISPERDAL [Concomitant]
     Dosage: UNK, AS NEEDED
     Route: 048
  3. VEGETAMIN A [Concomitant]
     Route: 048
  4. ROHYPNOL [Concomitant]
     Dosage: 2 D/F, DAILY (1/D)
     Route: 048

REACTIONS (1)
  - DRUG ERUPTION [None]
